FAERS Safety Report 21576180 (Version 3)
Quarter: 2022Q4

REPORT INFORMATION
  Report Type: Spontaneous
  Country: US (occurrence: US)
  Receive Date: 20221110
  Receipt Date: 20221202
  Transmission Date: 20230113
  Serious: Yes (Other)
  Sender: FDA-Public Use
  Company Number: US-PFIZER INC-202201283797

PATIENT
  Age: 58 Year
  Sex: Male

DRUGS (4)
  1. MINOXIDIL [Suspect]
     Active Substance: MINOXIDIL
     Indication: Alopecia areata
     Dosage: UNK
     Route: 061
  2. MINOXIDIL [Suspect]
     Active Substance: MINOXIDIL
     Dosage: 5 MG, 2X/DAY
     Route: 048
  3. MINOXIDIL [Suspect]
     Active Substance: MINOXIDIL
     Dosage: UNK
     Route: 048
  4. MINOXIDIL [Suspect]
     Active Substance: MINOXIDIL
     Dosage: 2.5 MG, DAILY

REACTIONS (5)
  - Atrial fibrillation [Recovered/Resolved]
  - Oedema peripheral [Recovered/Resolved]
  - Off label use [Unknown]
  - Drug ineffective for unapproved indication [Unknown]
  - Drug effective for unapproved indication [Unknown]
